FAERS Safety Report 7552198-4 (Version None)
Quarter: 2011Q2

REPORT INFORMATION
  Report Type: 
  Country: None (occurrence: None)
  Receive Date: 20110616
  Receipt Date: 20110607
  Transmission Date: 20111010
  Serious: Yes (Hospitalization, Other)
  Sender: FDA-Public Use
  Company Number: JP-MERCK-1102USA01929

PATIENT
  Age: 57 Year
  Sex: Female
  Weight: 40 kg

DRUGS (2)
  1. SINEMET [Suspect]
     Dosage: DIVIDED DOSE FREQUENCY UNKNOWN
     Route: 048
     Dates: start: 20110209, end: 20110226
  2. SINEMET [Suspect]
     Indication: RESTLESS LEGS SYNDROME
     Dosage: 300MG, 300MG, 400MG
     Route: 048

REACTIONS (1)
  - DYSKINESIA [None]
